FAERS Safety Report 20876511 (Version 1)
Quarter: 2022Q2

REPORT INFORMATION
  Report Type: Report from Study
  Country: CO (occurrence: CO)
  Receive Date: 20220526
  Receipt Date: 20220526
  Transmission Date: 20220720
  Serious: Yes (Hospitalization)
  Sender: FDA-Public Use
  Company Number: CO-NOVARTISPH-NVSC2022CO037535

PATIENT
  Age: 61 Year
  Sex: Male

DRUGS (2)
  1. MEKINIST [Suspect]
     Active Substance: TRAMETINIB DIMETHYL SULFOXIDE
     Indication: Metastatic malignant melanoma
     Dosage: UNK UNK, QD
     Route: 048
  2. TAFINLAR [Suspect]
     Active Substance: DABRAFENIB MESYLATE
     Indication: Metastatic malignant melanoma
     Dosage: UNK UNK, Q12H
     Route: 048

REACTIONS (10)
  - Brain neoplasm [Unknown]
  - Ill-defined disorder [Unknown]
  - Dyspepsia [Unknown]
  - Paraesthesia [Unknown]
  - Blood pressure decreased [Recovering/Resolving]
  - Malaise [Unknown]
  - Abdominal pain [Unknown]
  - Vomiting [Recovering/Resolving]
  - Diarrhoea [Recovering/Resolving]
  - Hyperhidrosis [Recovering/Resolving]

NARRATIVE: CASE EVENT DATE: 20220502
